FAERS Safety Report 4398032-5 (Version None)
Quarter: 2004Q2

REPORT INFORMATION
  Report Type: 
  Country: None (occurrence: None)
  Receive Date: 20040621
  Receipt Date: 20031028
  Transmission Date: 20050107
  Serious: Yes (Death, Other)
  Sender: FDA-Public Use
  Company Number: USA-2003-0009147

PATIENT
  Sex: Male
  Weight: 76.2 kg

DRUGS (12)
  1. OXYCONTIN [Suspect]
  2. COCAINE (COCAINE) [Suspect]
  3. CANNABIS (CANNABIS) [Suspect]
  4. CAFFEINE (CAFFEINE) [Suspect]
  5. CODEINE (CODEINE) [Suspect]
  6. PAROXETINE HCL [Suspect]
  7. CITALOPRAM [Suspect]
  8. NICOTINE [Suspect]
  9. METAMFETAMINE (METAMFETAMINE) [Suspect]
  10. OXYMORPHONE HYDROCHLORIDE [Suspect]
  11. CLONAZEPAM [Concomitant]
  12. PAXIL [Concomitant]

REACTIONS (3)
  - ACCIDENTAL OVERDOSE [None]
  - DRUG ABUSER [None]
  - MULTIPLE DRUG OVERDOSE ACCIDENTAL [None]
